FAERS Safety Report 4474073-4 (Version None)
Quarter: 2004Q4

REPORT INFORMATION
  Report Type: 
  Country: None (occurrence: None)
  Receive Date: 20041008
  Receipt Date: 20040929
  Transmission Date: 20050328
  Serious: Yes (Death, Hospitalization)
  Sender: FDA-Public Use
  Company Number: 8957

PATIENT
  Age: 72 Year
  Sex: Female
  Weight: 71 kg

DRUGS (5)
  1. DAUNORUBICIN HCL [Suspect]
     Indication: ACUTE MYELOID LEUKAEMIA
     Dosage: 45 MG/M2 DAILY IV
     Route: 042
     Dates: start: 20040813, end: 20040901
  2. CYTARABINE [Suspect]
     Indication: ACUTE MYELOID LEUKAEMIA
     Dosage: 100 MG/M2 DAILY IV
     Route: 042
     Dates: start: 20040813, end: 20040901
  3. PLACEBO [Suspect]
     Indication: ACUTE MYELOID LEUKAEMIA
     Dosage: 550 MG/M2 DAILY
  4. GM-CSF [Concomitant]
  5. NEUPOGEN [Concomitant]

REACTIONS (9)
  - COAGULOPATHY [None]
  - DYSPNOEA [None]
  - EPISTAXIS [None]
  - FAECAL OCCULT BLOOD POSITIVE [None]
  - HAEMORRHAGE SUBCUTANEOUS [None]
  - PNEUMONIA PRIMARY ATYPICAL [None]
  - PULMONARY OEDEMA [None]
  - RESPIRATORY FAILURE [None]
  - THROMBOCYTOPENIA [None]
